FAERS Safety Report 8203216-1 (Version None)
Quarter: 2012Q1

REPORT INFORMATION
  Report Type: 
  Country: None (occurrence: None)
  Receive Date: 20120312
  Receipt Date: 20120227
  Transmission Date: 20120608
  Serious: Yes (Other)
  Sender: FDA-Public Use
  Company Number: IT-ROCHE-1044149

PATIENT

DRUGS (2)
  1. PEGINTERFERON ALFA-2A [Suspect]
     Indication: HEPATITIS C
  2. ROFERON-A [Suspect]
     Indication: HEPATITIS C
     Dosage: 3 MU

REACTIONS (2)
  - NEUTROPENIA [None]
  - ANAEMIA HAEMOLYTIC AUTOIMMUNE [None]
